FAERS Safety Report 10131411 (Version 1)
Quarter: 2014Q2

REPORT INFORMATION
  Report Type: Report from Study
  Country: DE (occurrence: DE)
  Receive Date: 20140428
  Receipt Date: 20140428
  Transmission Date: 20141212
  Serious: Yes (Other)
  Sender: FDA-Public Use
  Company Number: PHHY2014DE050442

PATIENT
  Sex: Male

DRUGS (7)
  1. AMN107 [Suspect]
     Indication: CHRONIC MYELOID LEUKAEMIA
     Dosage: 600 MG/DAY
     Route: 048
     Dates: start: 20130506
  2. L-THYROXIN [Concomitant]
     Dosage: 125 MG, UNK
  3. AMLODIPIN [Concomitant]
     Dosage: 10 MG, UNK
  4. SOMNOSAN [Concomitant]
  5. OPIPRAMOL [Concomitant]
     Dosage: 50 MG, UNK
  6. OMEPRAZOL [Concomitant]
     Dosage: 20 MG, UNK
  7. MOVICOL [Concomitant]
     Dates: start: 20130523

REACTIONS (1)
  - Circulatory collapse [Recovered/Resolved]
